FAERS Safety Report 9384240 (Version 1)
Quarter: 2013Q3

REPORT INFORMATION
  Report Type: Spontaneous
  Country: US (occurrence: None)
  Receive Date: 20130702
  Receipt Date: 20130702
  Transmission Date: 20140515
  Serious: No
  Sender: FDA-Public Use
  Company Number: None

PATIENT
  Age: 56 Year
  Sex: Female
  Weight: 54.43 kg

DRUGS (1)
  1. CIPROFLOXACIN [Suspect]
     Indication: CYSTITIS
     Dosage: 1 PILL EVERY 12 HOURS
     Dates: start: 20130624, end: 20130630

REACTIONS (4)
  - Burning sensation [None]
  - Paraesthesia [None]
  - Fatigue [None]
  - Myalgia [None]
